FAERS Safety Report 20063178 (Version 3)
Quarter: 2022Q1

REPORT INFORMATION
  Report Type: Spontaneous
  Country: JP (occurrence: JP)
  Receive Date: 20211112
  Receipt Date: 20220120
  Transmission Date: 20220423
  Serious: Yes (Hospitalization, Other)
  Sender: FDA-Public Use
  Company Number: JP-NOVARTISPH-NVSC2021JP259265

PATIENT
  Age: 82 Year
  Sex: Female
  Weight: 48.2 kg

DRUGS (11)
  1. RIVASTIGMINE [Suspect]
     Active Substance: RIVASTIGMINE
     Indication: Dementia Alzheimer^s type
     Dosage: 18 MG, QD, TAPE (INCLUDING POULTICE)
     Route: 062
     Dates: end: 2018
  2. RIVASTIGMINE [Suspect]
     Active Substance: RIVASTIGMINE
     Dosage: 18 MG, QD, TAPE (INCLUDING POULTICE)
     Route: 062
     Dates: end: 20210624
  3. TEPRENONE [Concomitant]
     Active Substance: TEPRENONE
     Indication: Product used for unknown indication
     Dosage: 50 MG, Q12H
     Route: 048
  4. IFENPRODIL [Concomitant]
     Active Substance: IFENPRODIL
     Indication: Product used for unknown indication
     Dosage: 20 MG, Q12H
     Route: 048
  5. VONOPRAZAN FUMARATE [Concomitant]
     Active Substance: VONOPRAZAN FUMARATE
     Indication: Product used for unknown indication
     Dosage: 20 MG, EVERYDAY
     Route: 065
  6. HERBALS [Concomitant]
     Active Substance: HERBALS
     Indication: Product used for unknown indication
     Dosage: 2.5 G, Q8H
     Route: 065
  7. MONTELUKAST [Concomitant]
     Active Substance: MONTELUKAST SODIUM
     Indication: Product used for unknown indication
     Dosage: 10 MG, EVERYDAY
     Route: 065
  8. FEXOFENADINE HYDROCHLORIDE [Concomitant]
     Active Substance: FEXOFENADINE HYDROCHLORIDE
     Indication: Product used for unknown indication
     Dosage: 60 MG, Q12H
     Route: 065
  9. DEXTROMETHORPHAN HYDROBROMIDE [Concomitant]
     Active Substance: DEXTROMETHORPHAN HYDROBROMIDE
     Indication: Product used for unknown indication
     Dosage: 15 MG, Q12H
     Route: 065
  10. MIYA-BM [Concomitant]
     Active Substance: CLOSTRIDIUM BUTYRICUM SPORES STRAIN M-55
     Indication: Product used for unknown indication
     Dosage: UNK, Q8H
     Route: 065
  11. FLUTICASONE FUROATE [Concomitant]
     Active Substance: FLUTICASONE FUROATE
     Indication: Product used for unknown indication
     Dosage: UNK
     Route: 045

REACTIONS (3)
  - Cholinergic syndrome [Recovering/Resolving]
  - Cholinergic syndrome [Recovering/Resolving]
  - Cholinergic syndrome [Recovering/Resolving]

NARRATIVE: CASE EVENT DATE: 20181016
